FAERS Safety Report 5582711-8 (Version None)
Quarter: 2008Q1

REPORT INFORMATION
  Report Type: 
  Country: None (occurrence: None)
  Receive Date: 20080107
  Receipt Date: 20080102
  Transmission Date: 20080703
  Serious: Yes (Life-Threatening, Hospitalization)
  Sender: FDA-Public Use
  Company Number: FR-NOVOPROD-270709

PATIENT
  Age: 69 Year
  Sex: Male

DRUGS (4)
  1. NOVORAPID [Suspect]
     Indication: TYPE 1 DIABETES MELLITUS
     Dosage: 36 IU, QD
     Route: 058
     Dates: start: 20071109
  2. LANTUS [Concomitant]
     Dosage: 20 IU, QD
     Route: 058
     Dates: start: 20071109
  3. DITROPAN                           /00538901/ [Concomitant]
  4. STILNOX                            /00914901/ [Concomitant]

REACTIONS (9)
  - APHASIA [None]
  - BRAIN OEDEMA [None]
  - CHORIOMENINGITIS LYMPHOCYTIC [None]
  - COMA [None]
  - EPILEPSY [None]
  - HEMIPARESIS [None]
  - HERPES VIRUS INFECTION [None]
  - HYPERTENSION [None]
  - HYPOGLYCAEMIA [None]
